FAERS Safety Report 8078352-3 (Version None)
Quarter: 2012Q1

REPORT INFORMATION
  Report Type: 
  Country: None (occurrence: None)
  Receive Date: 20120123
  Receipt Date: 20120111
  Transmission Date: 20120608
  Serious: Yes (Hospitalization)
  Sender: FDA-Public Use
  Company Number: USA/USA/12/0022652

PATIENT
  Age: 70 Year
  Sex: Male

DRUGS (4)
  1. INSULIN [Concomitant]
  2. CARVEDILOL [Suspect]
     Indication: PRODUCT USED FOR UNKNOWN INDICATION
  3. SPIRONOLACTONE [Suspect]
     Indication: PRODUCT USED FOR UNKNOWN INDICATION
  4. VALSARTAN [Suspect]
     Indication: PRODUCT USED FOR UNKNOWN INDICATION

REACTIONS (13)
  - HAEMOGLOBIN DECREASED [None]
  - HYPERKALAEMIA [None]
  - OEDEMA [None]
  - SYNCOPE [None]
  - BODY TEMPERATURE DECREASED [None]
  - RESPIRATORY DISTRESS [None]
  - BLOOD GLUCOSE INCREASED [None]
  - HYPOTENSION [None]
  - BLOOD CREATININE INCREASED [None]
  - RESPIRATORY RATE INCREASED [None]
  - ATRIOVENTRICULAR BLOCK [None]
  - SINUS ARREST [None]
  - NODAL ARRHYTHMIA [None]
